FAERS Safety Report 18182293 (Version 2)
Quarter: 2020Q4

REPORT INFORMATION
  Report Type: Spontaneous
  Country: CL (occurrence: CL)
  Receive Date: 20200821
  Receipt Date: 20201029
  Transmission Date: 20210113
  Serious: Yes (Other)
  Sender: FDA-Public Use
  Company Number: CL-009507513-2008CHL008938

PATIENT
  Sex: Female

DRUGS (3)
  1. NUVARING [Suspect]
     Active Substance: ETHINYL ESTRADIOL\ETONOGESTREL
     Dosage: 1 RING, 21 DAYS OF USE
     Route: 067
     Dates: start: 201902
  2. METFORMIN [Concomitant]
     Active Substance: METFORMIN HYDROCHLORIDE
     Dosage: UNK
  3. PERENTERYL [Concomitant]
     Dosage: UNK

REACTIONS (4)
  - Medical device discomfort [Unknown]
  - Device breakage [Unknown]
  - COVID-19 [Unknown]
  - Device expulsion [Unknown]

NARRATIVE: CASE EVENT DATE: 2020
